FAERS Safety Report 22223455 (Version 2)
Quarter: 2023Q2

REPORT INFORMATION
  Report Type: Spontaneous
  Country: US (occurrence: US)
  Receive Date: 20230418
  Receipt Date: 20230420
  Transmission Date: 20230721
  Serious: Yes (Other)
  Sender: FDA-Public Use
  Company Number: US-PFIZER INC-202300152291

PATIENT
  Age: 14 Year
  Sex: Male
  Weight: 36.29 kg

DRUGS (1)
  1. SOMATROPIN [Suspect]
     Active Substance: SOMATROPIN
     Indication: Growth hormone deficiency
     Dosage: 1.6 MG, 1X/DAY (1.6MG NIGHTLY ONE TIME A DAY)
     Dates: start: 20230405

REACTIONS (5)
  - Haemorrhage [Unknown]
  - Pain [Unknown]
  - Injection site extravasation [Unknown]
  - Incorrect dose administered [Unknown]
  - Device use error [Unknown]
